FAERS Safety Report 13628943 (Version 4)
Quarter: 2018Q2

REPORT INFORMATION
  Report Type: Spontaneous
  Country: US (occurrence: US)
  Receive Date: 20170608
  Receipt Date: 20180608
  Transmission Date: 20180711
  Serious: Yes (Other)
  Sender: FDA-Public Use
  Company Number: US-PFIZER INC-2017250361

PATIENT
  Age: 38 Year
  Sex: Male
  Weight: 56.24 kg

DRUGS (2)
  1. GABAPENTIN. [Suspect]
     Active Substance: GABAPENTIN
     Dosage: 300 MG, 3X/DAY
     Route: 048
     Dates: start: 201511, end: 201511
  2. GABAPENTIN. [Suspect]
     Active Substance: GABAPENTIN
     Indication: HEADACHE
     Dosage: 300 MG, 2X/DAY [FIRST WEEK]
     Route: 048
     Dates: start: 201511, end: 201511

REACTIONS (17)
  - Seizure [Recovered/Resolved]
  - Withdrawal syndrome [Unknown]
  - Product use in unapproved indication [Unknown]
  - Bowel movement irregularity [Unknown]
  - Weight decreased [Recovered/Resolved]
  - Drug hypersensitivity [Unknown]
  - Groin pain [Unknown]
  - Sleep disorder [Recovering/Resolving]
  - Scar [Not Recovered/Not Resolved]
  - Loss of consciousness [Recovered/Resolved]
  - Erectile dysfunction [Recovered/Resolved]
  - Pain [Unknown]
  - Decreased appetite [Recovered/Resolved]
  - Tremor [Recovered/Resolved]
  - Hyperhidrosis [Recovered/Resolved]
  - Ejaculation disorder [Recovered/Resolved]
  - Skin disorder [Recovered/Resolved]

NARRATIVE: CASE EVENT DATE: 2015
